FAERS Safety Report 4635238-1 (Version None)
Quarter: 2005Q2

REPORT INFORMATION
  Report Type: 
  Country: None (occurrence: None)
  Receive Date: 20050414
  Receipt Date: 20030911
  Transmission Date: 20051028
  Serious: Yes (Other)
  Sender: FDA-Public Use
  Company Number: PHBS2003NZ09807

PATIENT
  Age: 21 Year
  Sex: Female

DRUGS (2)
  1. CLOZARIL [Suspect]
     Indication: SCHIZOPHRENIA
     Dosage: 350 MG/DAY
     Route: 048
     Dates: start: 20010928
  2. CLOZARIL [Suspect]
     Dosage: 300 MG NOCTE
     Route: 048

REACTIONS (2)
  - HODGKIN'S DISEASE [None]
  - LYMPHOPENIA [None]
